FAERS Safety Report 9447500 (Version 3)
Quarter: 2013Q3

REPORT INFORMATION
  Report Type: Spontaneous
  Country: US (occurrence: US)
  Receive Date: 20130808
  Receipt Date: 20130913
  Transmission Date: 20140515
  Serious: No
  Sender: FDA-Public Use
  Company Number: US-PFIZER INC-2013229364

PATIENT
  Age: 46 Year
  Sex: Female
  Weight: 63.49 kg

DRUGS (2)
  1. ALAVERT D-12 HOUR ALLERGY + SINUS [Suspect]
     Indication: HYPERSENSITIVITY
     Dosage: 10/240MG (2 TABLETS OF 5/ 120MG), ONCE A DAY
     Route: 048
     Dates: start: 201304, end: 201304
  2. ALAVERT D-12 HOUR ALLERGY + SINUS [Suspect]
     Indication: SINUS DISORDER

REACTIONS (3)
  - Extra dose administered [Unknown]
  - Nervousness [Recovered/Resolved]
  - Weight increased [Unknown]
